FAERS Safety Report 14404575 (Version 1)
Quarter: 2018Q1

REPORT INFORMATION
  Report Type: Spontaneous
  Country: US (occurrence: US)
  Receive Date: 20180117
  Receipt Date: 20180117
  Transmission Date: 20180509
  Serious: Yes (Other)
  Sender: FDA-Public Use
  Company Number: US-SA-2016SA233560

PATIENT
  Sex: Female

DRUGS (2)
  1. TAXOTERE [Suspect]
     Active Substance: DOCETAXEL
     Indication: BREAST CANCER FEMALE
     Route: 042
     Dates: start: 20100323, end: 20100323
  2. TAXOTERE [Suspect]
     Active Substance: DOCETAXEL
     Indication: BREAST CANCER FEMALE
     Route: 042
     Dates: start: 20091201, end: 20091201

REACTIONS (7)
  - Impaired quality of life [Unknown]
  - Injury [Unknown]
  - Anxiety [Unknown]
  - Impaired work ability [Unknown]
  - Alopecia [Unknown]
  - Pain [Unknown]
  - Emotional distress [Unknown]
